FAERS Safety Report 7516803-0 (Version None)
Quarter: 2011Q2

REPORT INFORMATION
  Report Type: 
  Country: None (occurrence: None)
  Receive Date: 20110601
  Receipt Date: 20110526
  Transmission Date: 20111010
  Serious: Yes (Life-Threatening)
  Sender: FDA-Public Use
  Company Number: US-MERCK-0908USA03497

PATIENT
  Age: 79 Year
  Sex: Male

DRUGS (6)
  1. CARVEDILOL [Concomitant]
     Route: 065
  2. JANUVIA [Suspect]
     Indication: DIABETES MELLITUS
     Route: 048
     Dates: start: 20090701
  3. JANUVIA [Suspect]
     Route: 048
     Dates: start: 20100101
  4. STARLIX [Concomitant]
     Route: 065
  5. JANUVIA [Suspect]
     Route: 048
     Dates: start: 20110401, end: 20110501
  6. LOTREL [Concomitant]
     Route: 065

REACTIONS (2)
  - RENAL IMPAIRMENT [None]
  - INCORRECT DOSE ADMINISTERED [None]
